FAERS Safety Report 8996174 (Version 1)
Quarter: 2013Q1

REPORT INFORMATION
  Report Type: Spontaneous
  Country: CH (occurrence: CH)
  Receive Date: 20130103
  Receipt Date: 20130103
  Transmission Date: 20140127
  Serious: Yes (Hospitalization)
  Sender: FDA-Public Use
  Company Number: PHHY2012CH121739

PATIENT
  Age: 80 Year
  Sex: Female

DRUGS (2)
  1. DICLOFENAC [Suspect]
     Indication: OSTEOARTHRITIS
     Dosage: 75 MG, BID (TWICE DAILY)
     Route: 048
  2. ALISKIREN [Concomitant]
     Indication: HYPERTENSION
     Dosage: UNK UKN, UNK

REACTIONS (14)
  - Hypertensive crisis [Unknown]
  - Blood pressure increased [Unknown]
  - Leukocytosis [Unknown]
  - Microangiopathic haemolytic anaemia [Recovering/Resolving]
  - Renal failure acute [Not Recovered/Not Resolved]
  - Blood creatinine increased [Unknown]
  - Proteinuria [Unknown]
  - Haematuria [Unknown]
  - Leukocyturia [Unknown]
  - Normochromic normocytic anaemia [Unknown]
  - Fatigue [Unknown]
  - Asthenia [Unknown]
  - Decreased appetite [Unknown]
  - Thrombocytopenia [Unknown]
